FAERS Safety Report 5462727-2 (Version None)
Quarter: 2007Q3

REPORT INFORMATION
  Report Type: 
  Country: None (occurrence: None)
  Receive Date: 20070920
  Receipt Date: 20070301
  Transmission Date: 20080115
  Serious: No
  Sender: FDA-Public Use
  Company Number: A0641313A

PATIENT
  Age: 11 Year
  Sex: Female

DRUGS (1)
  1. ABREVA [Suspect]
     Indication: DRUG USE FOR UNKNOWN INDICATION
     Dates: start: 20070225

REACTIONS (3)
  - APPLICATION SITE INFECTION [None]
  - APPLICATION SITE SCAB [None]
  - INTENTIONAL DRUG MISUSE [None]
